FAERS Safety Report 4511493-3 (Version None)
Quarter: 2004Q4

REPORT INFORMATION
  Report Type: 
  Country: None (occurrence: None)
  Receive Date: 20041129
  Receipt Date: 20040831
  Transmission Date: 20050328
  Serious: No
  Sender: FDA-Public Use
  Company Number: US-BRISTOL-MYERS SQUIBB COMPANY-12689303

PATIENT
  Sex: Male

DRUGS (1)
  1. ABILIFY [Suspect]
     Dosage: INCREASED DOSE TO 20 MG/TWICE DAILY.
     Route: 048

REACTIONS (2)
  - INSOMNIA [None]
  - PRESCRIBED OVERDOSE [None]
